FAERS Safety Report 8778600 (Version 1)
Quarter: 2012Q4

REPORT INFORMATION
  Report Type: 
  Country: US (occurrence: US)
  Receive Date: 20120912
  Receipt Date: 20120912
  Transmission Date: 20130627
  Serious: Yes (Hospitalization)
  Sender: FDA-Public Use
  Company Number: UM-JNJFOC-20120808459

PATIENT
  Age: 59 Year
  Sex: Female
  Weight: 133 kg

DRUGS (2)
  1. XARELTO [Suspect]
     Indication: ATRIAL FIBRILLATION
     Route: 048
     Dates: start: 201203, end: 20120813
  2. XARELTO [Suspect]
     Indication: CEREBROVASCULAR ACCIDENT PROPHYLAXIS
     Route: 048
     Dates: start: 201203, end: 20120813

REACTIONS (5)
  - Pulmonary haemorrhage [Recovering/Resolving]
  - Haemoptysis [Recovering/Resolving]
  - Haematuria [Recovering/Resolving]
  - Contusion [Recovering/Resolving]
  - Conjunctival haemorrhage [Recovering/Resolving]
